FAERS Safety Report 19722845 (Version 3)
Quarter: 2021Q4

REPORT INFORMATION
  Report Type: Report from Study
  Country: US (occurrence: US)
  Receive Date: 20210819
  Receipt Date: 20211007
  Transmission Date: 20220303
  Serious: Yes (Other)
  Sender: FDA-Public Use
  Company Number: NVSC2021US181947

PATIENT
  Sex: Female

DRUGS (1)
  1. COSENTYX [Suspect]
     Active Substance: SECUKINUMAB
     Indication: Psoriasis
     Dosage: BENEATH THE SKIN, USUALLY VIA INJECTION
     Route: 058
     Dates: start: 202107

REACTIONS (6)
  - Oropharyngeal blistering [Unknown]
  - Stomatitis [Unknown]
  - Hypersensitivity [Unknown]
  - Oral mucosal blistering [Unknown]
  - Lip blister [Unknown]
  - Hypoaesthesia oral [Unknown]
